FAERS Safety Report 9679168 (Version 2)
Quarter: 2014Q1

REPORT INFORMATION
  Report Type: Spontaneous
  Country: JP (occurrence: JP)
  Receive Date: 20131108
  Receipt Date: 20140303
  Transmission Date: 20141002
  Serious: Yes (Death, Hospitalization)
  Sender: FDA-Public Use
  Company Number: JP-BAXTER-2013BAX044317

PATIENT
  Age: 49 Year
  Sex: Male
  Weight: 98.1 kg

DRUGS (11)
  1. ENDOXAN 1G [Suspect]
     Indication: NON-HODGKIN^S LYMPHOMA
     Dosage: FOR 5 DAYS
     Route: 065
     Dates: start: 200709
  2. IFOSFAMIDE FOR INJECTION [Suspect]
     Indication: NON-HODGKIN^S LYMPHOMA
     Dosage: FOR 3 DAYS
     Route: 065
     Dates: start: 200803
  3. PREDONINE [Suspect]
     Indication: NON-HODGKIN^S LYMPHOMA
     Dosage: FOR 5 DAYS
     Route: 065
     Dates: start: 200709
  4. VINCRISTINE [Suspect]
     Indication: NON-HODGKIN^S LYMPHOMA
     Dosage: FOR FIVE DAYS
     Route: 065
     Dates: start: 200709
  5. MITOXANTRONE HYDROCHLORIDE [Suspect]
     Indication: NON-HODGKIN^S LYMPHOMA
     Dosage: FOR FIVE DAYS
     Route: 065
     Dates: start: 200709
  6. CARBOPLATIN [Suspect]
     Indication: NON-HODGKIN^S LYMPHOMA
     Dosage: THREE COURSES FOR THREE DAYS
     Route: 065
     Dates: start: 200803
  7. ETOPOSIDE [Suspect]
     Indication: NON-HODGKIN^S LYMPHOMA
     Dosage: THREE COURSES FOR THREE DAYS
     Route: 065
     Dates: start: 200803
  8. ETOPOSIDE [Suspect]
     Dosage: FOR FOUR DAYS
  9. CYTARABINE [Suspect]
     Indication: NON-HODGKIN^S LYMPHOMA
     Dosage: FOR FOUR DAYS
     Route: 065
  10. CYTARABINE [Suspect]
     Dosage: 2 G/M2 FOR FOUR DAYS
     Dates: start: 20100906
  11. MELPHALAN [Suspect]
     Indication: NON-HODGKIN^S LYMPHOMA
     Route: 065

REACTIONS (5)
  - Second primary malignancy [Fatal]
  - Acute myeloid leukaemia [Fatal]
  - Multi-organ failure [Fatal]
  - Pyrexia [Unknown]
  - Lymphadenopathy [Unknown]
